FAERS Safety Report 6660804-1 (Version None)
Quarter: 2010Q1

REPORT INFORMATION
  Report Type: 
  Country: None (occurrence: None)
  Receive Date: 20100331
  Receipt Date: 20100326
  Transmission Date: 20100710
  Serious: Yes (Death)
  Sender: FDA-Public Use
  Company Number: JP-ROCHE-686573

PATIENT
  Sex: Male
  Weight: 48.3 kg

DRUGS (23)
  1. TOCILIZUMAB [Suspect]
     Indication: RHEUMATOID ARTHRITIS
     Dosage: DOSE REGIMEN; 01
     Route: 041
     Dates: start: 20081027, end: 20081027
  2. TOCILIZUMAB [Suspect]
     Dosage: DOSE REGIMEN: 02
     Route: 041
     Dates: start: 20081127, end: 20081127
  3. TOCILIZUMAB [Suspect]
     Route: 041
     Dates: start: 20081229, end: 20081229
  4. TOCILIZUMAB [Suspect]
     Dosage: DOSE REGIMEN :03
     Route: 041
     Dates: start: 20090128, end: 20090128
  5. TOCILIZUMAB [Suspect]
     Dosage: DOSE REGIMEN: 04
     Route: 041
     Dates: start: 20090226, end: 20090226
  6. TOCILIZUMAB [Suspect]
     Dosage: DOSE REGIMEN: 05
     Route: 041
     Dates: start: 20090326, end: 20090326
  7. TOCILIZUMAB [Suspect]
     Dosage: DOSE REGIMEN: 07
     Route: 041
     Dates: start: 20090423, end: 20090423
  8. TOCILIZUMAB [Suspect]
     Route: 041
     Dates: start: 20090521, end: 20090521
  9. TOCILIZUMAB [Suspect]
     Route: 041
     Dates: start: 20090618, end: 20090618
  10. TOCILIZUMAB [Suspect]
     Route: 041
     Dates: start: 20090718, end: 20090718
  11. TOCILIZUMAB [Suspect]
     Route: 041
     Dates: start: 20090822, end: 20090822
  12. TOCILIZUMAB [Suspect]
     Route: 041
     Dates: start: 20090924, end: 20090924
  13. TOCILIZUMAB [Suspect]
     Route: 041
     Dates: start: 20091022, end: 20091022
  14. TOCILIZUMAB [Suspect]
     Route: 041
     Dates: start: 20091126, end: 20091126
  15. TOCILIZUMAB [Suspect]
     Route: 041
     Dates: start: 20091224, end: 20091224
  16. TOCILIZUMAB [Suspect]
     Route: 041
     Dates: start: 20100121, end: 20100121
  17. PREDNISOLONE [Concomitant]
     Dosage: FORM: PERORAL AGENT.
     Route: 048
  18. LOXONIN [Concomitant]
     Dosage: FORM: PERORAL AGENT.
     Route: 048
  19. SOLON [Concomitant]
     Dosage: DOSE FORM: MINUTE GRAIN
     Route: 048
  20. HARNAL [Concomitant]
     Route: 048
  21. OLMESARTAN MEDOXOMIL [Concomitant]
     Route: 048
  22. ALFAROL [Concomitant]
     Route: 048
     Dates: start: 20090128
  23. CONIEL [Concomitant]
     Route: 048
     Dates: start: 20090227

REACTIONS (2)
  - LUNG NEOPLASM MALIGNANT [None]
  - NASOPHARYNGITIS [None]
